FAERS Safety Report 18714257 (Version 2)
Quarter: 2021Q2

REPORT INFORMATION
  Report Type: Spontaneous
  Country: US (occurrence: US)
  Receive Date: 20210108
  Receipt Date: 20210510
  Transmission Date: 20210717
  Serious: Yes (Life-Threatening, Hospitalization, Other)
  Sender: FDA-Public Use
  Company Number: US-DRREDDYS-USA/USA/20/0130691

PATIENT
  Age: 72 Year
  Sex: Female
  Weight: 54.4 kg

DRUGS (11)
  1. TRAMADOL. [Concomitant]
     Active Substance: TRAMADOL
     Indication: ORAL PAIN
  2. SUFENTANIL [Suspect]
     Active Substance: SUFENTANIL
     Dosage: 0.1?0.5 MICROG/KG/HR
  3. LOSARTAN. [Concomitant]
     Active Substance: LOSARTAN
     Indication: HYPERTENSION
  4. ISOFLURAN [Suspect]
     Active Substance: ISOFLURANE
     Indication: MAINTENANCE OF ANAESTHESIA
  5. KETAMINE [Suspect]
     Active Substance: KETAMINE
     Indication: MAINTENANCE OF ANAESTHESIA
     Dosage: 3?5 MICROG/KG/MIN
  6. SUFENTANIL [Suspect]
     Active Substance: SUFENTANIL
     Indication: MAINTENANCE OF ANAESTHESIA
     Dosage: 0.1?0.5 MICROG/KG/HR
  7. LIDOCAINE. [Suspect]
     Active Substance: LIDOCAINE
     Indication: MAINTENANCE OF ANAESTHESIA
  8. PROPOFOL INJECTABLE EMULSION [Suspect]
     Active Substance: PROPOFOL
     Dosage: 25?50 MICROG/KG/MIN
  9. KETAMINE [Suspect]
     Active Substance: KETAMINE
     Dosage: 3?5 MICROG/KG/MIN
  10. PROPOFOL INJECTABLE EMULSION [Suspect]
     Active Substance: PROPOFOL
     Indication: MAINTENANCE OF ANAESTHESIA
     Dosage: 25?50 MICROG/KG/MIN
  11. ISOFLURANE. [Suspect]
     Active Substance: ISOFLURANE
     Indication: MAINTENANCE OF ANAESTHESIA

REACTIONS (1)
  - Vasoplegia syndrome [Recovered/Resolved]
